FAERS Safety Report 17093079 (Version 1)
Quarter: 2019Q4

REPORT INFORMATION
  Report Type: Spontaneous
  Country: CN (occurrence: CN)
  Receive Date: 20191129
  Receipt Date: 20191129
  Transmission Date: 20200122
  Serious: Yes (Hospitalization)
  Sender: FDA-Public Use
  Company Number: CN-APOTEX-2019AP025539

PATIENT
  Sex: Male

DRUGS (2)
  1. SEROXAT [Suspect]
     Active Substance: PAROXETINE HYDROCHLORIDE
     Dosage: 0.5 DF, QD
     Route: 048
     Dates: start: 2018
  2. SEROXAT [Suspect]
     Active Substance: PAROXETINE HYDROCHLORIDE
     Indication: ANXIETY
     Dosage: 1 DF, QD
     Route: 048
     Dates: start: 2006, end: 2018

REACTIONS (10)
  - Drug ineffective [Unknown]
  - Condition aggravated [Recovered/Resolved]
  - Body height decreased [Unknown]
  - Blood pressure increased [Unknown]
  - Disease recurrence [Recovered/Resolved]
  - Asthenia [Unknown]
  - Discomfort [Recovered/Resolved]
  - Palpitations [Unknown]
  - Weight decreased [Unknown]
  - Insomnia [Unknown]

NARRATIVE: CASE EVENT DATE: 2018
